FAERS Safety Report 22344945 (Version 11)
Quarter: 2025Q1

REPORT INFORMATION
  Report Type: Spontaneous
  Country: US (occurrence: US)
  Receive Date: 20230519
  Receipt Date: 20250205
  Transmission Date: 20250408
  Serious: Yes (Disabling, Other)
  Sender: AMGEN
  Company Number: US-HORIZON THERAPEUTICS-HZN-2023-003625

PATIENT
  Age: 73 Year
  Sex: Female
  Weight: 123 kg

DRUGS (41)
  1. TEPEZZA [Suspect]
     Active Substance: TEPROTUMUMAB-TRBW
     Indication: Endocrine ophthalmopathy
     Route: 042
     Dates: start: 20200923
  2. TEPEZZA [Suspect]
     Active Substance: TEPROTUMUMAB-TRBW
     Indication: Graves^ disease
     Route: 042
     Dates: start: 20201014
  3. TEPEZZA [Suspect]
     Active Substance: TEPROTUMUMAB-TRBW
     Route: 042
     Dates: start: 20201104
  4. TEPEZZA [Suspect]
     Active Substance: TEPROTUMUMAB-TRBW
     Route: 042
     Dates: start: 20201125
  5. TEPEZZA [Suspect]
     Active Substance: TEPROTUMUMAB-TRBW
     Route: 042
     Dates: start: 20210116
  6. TEPEZZA [Suspect]
     Active Substance: TEPROTUMUMAB-TRBW
     Route: 042
     Dates: start: 20210427
  7. TEPEZZA [Suspect]
     Active Substance: TEPROTUMUMAB-TRBW
     Route: 042
     Dates: start: 20210519
  8. TEPEZZA [Suspect]
     Active Substance: TEPROTUMUMAB-TRBW
     Route: 042
     Dates: start: 20210609
  9. PROLIA [Suspect]
     Active Substance: DENOSUMAB
     Indication: Product used for unknown indication
     Dosage: 60 MILLIGRAM PER MILLILITRE, Q6MO
     Route: 058
     Dates: start: 20200717
  10. ARMOUR THYROID [Concomitant]
     Active Substance: THYROID, PORCINE
     Dosage: 1 TABLET, QD
     Route: 048
  11. ARMOUR THYROID [Concomitant]
     Active Substance: THYROID, PORCINE
  12. CALCIUM [Concomitant]
     Active Substance: CALCIUM
  13. CoQ10 rx [Concomitant]
  14. OMEGA 3 FISH OIL + VITAMIN D [Concomitant]
  15. OMEPRAZOLE [Concomitant]
     Active Substance: OMEPRAZOLE
  16. Quercetin with bromelain + zinc + vitamin c + vitamin d3 [Concomitant]
  17. RABEPRAZOLE SODIUM [Concomitant]
     Active Substance: RABEPRAZOLE SODIUM
     Dosage: 20 MG, QD
     Route: 048
  18. SYNTHROID [Concomitant]
     Active Substance: LEVOTHYROXINE SODIUM
     Route: 048
  19. HOMEOPATHICS [Concomitant]
     Active Substance: HOMEOPATHICS
  20. VITAMIN B COMPLEX PLUS [Concomitant]
  21. VITAMIN C [Concomitant]
     Active Substance: ASCORBIC ACID
  22. VITAMIN D3 WITH VITAMIN A [Concomitant]
  23. ACIPHEX [Concomitant]
     Active Substance: RABEPRAZOLE SODIUM
     Dosage: 1 DOSAGE FORM, QD (20 MG DELAYED RELASE TABLET)
     Route: 048
     Dates: start: 20200717
  24. MULTI DAY PLUS MINERALS [Concomitant]
     Dates: start: 20200717
  25. IRON [Concomitant]
     Active Substance: IRON
     Dates: start: 20200717
  26. SYNTHROID [Concomitant]
     Active Substance: LEVOTHYROXINE SODIUM
     Dosage: 1 DOSAGE FORM, QD (100 MCG TABLET)
     Route: 048
     Dates: start: 20200717
  27. MENAQUINONE 6 [Concomitant]
     Active Substance: MENAQUINONE 6
     Route: 002
     Dates: start: 20200717
  28. ERYTHROMYCIN [Concomitant]
     Active Substance: ERYTHROMYCIN
     Dates: start: 20211022
  29. ACETAMINOPHEN [Concomitant]
     Active Substance: ACETAMINOPHEN
     Dosage: 1 DOSAGE FORM, Q6H (300 MG)
     Route: 048
     Dates: start: 20211022
  30. CODEINE [Concomitant]
     Active Substance: CODEINE
     Dosage: 1 DOSAGE FORM, Q6H (30 MG TABLET)
     Route: 048
     Dates: start: 20211022
  31. TOBRADEX [Concomitant]
     Active Substance: DEXAMETHASONE\TOBRAMYCIN
  32. UPNEEQ [Concomitant]
     Active Substance: OXYMETAZOLINE HYDROCHLORIDE
     Route: 047
     Dates: start: 20220819
  33. XIIDRA [Concomitant]
     Active Substance: LIFITEGRAST
     Dosage: 1 DROP, BID ((5 PERCENT EYE DROPS IN A DROPPERETTE)
     Route: 047
     Dates: start: 20220819
  34. DRY EYE OMEGA BENEFITS [Concomitant]
     Dosage: 3 DOSAGE FORM, QD (800 MG-186.67 MG-8.33 MCG CAPSULE)
     Route: 048
  35. MAXITROL [Concomitant]
     Active Substance: DEXAMETHASONE\NEOMYCIN SULFATE\POLYMYXIN B SULFATE
     Dosage: UNK UNK, BID (3.5 MG/G-10000 UNIT/G-0.1%)
     Route: 047
  36. SODIUM CHLORIDE [Concomitant]
     Active Substance: SODIUM CHLORIDE
  37. SODIUM CHLORIDE [Concomitant]
     Active Substance: SODIUM CHLORIDE
  38. SODIUM CHLORIDE [Concomitant]
     Active Substance: SODIUM CHLORIDE
     Dates: start: 20201125
  39. SODIUM CHLORIDE [Concomitant]
     Active Substance: SODIUM CHLORIDE
     Dates: start: 20210427
  40. WATER FOR INJECTION [Concomitant]
     Active Substance: WATER
  41. OMNIPAQUE [Concomitant]
     Active Substance: IOHEXOL

REACTIONS (39)
  - Physical disability [Not Recovered/Not Resolved]
  - Disability [Not Recovered/Not Resolved]
  - Lumbar vertebral fracture [Unknown]
  - Deafness permanent [Not Recovered/Not Resolved]
  - Anxiety [Not Recovered/Not Resolved]
  - Concomitant disease aggravated [Not Recovered/Not Resolved]
  - Pain [Not Recovered/Not Resolved]
  - Injury [Not Recovered/Not Resolved]
  - Emotional distress [Not Recovered/Not Resolved]
  - Impaired quality of life [Not Recovered/Not Resolved]
  - Discomfort [Unknown]
  - Auditory disorder [Not Recovered/Not Resolved]
  - Arthritis [Unknown]
  - Economic problem [Not Recovered/Not Resolved]
  - Bronchitis [Unknown]
  - Vision blurred [Unknown]
  - Eye irritation [Unknown]
  - Product quality issue [Unknown]
  - SARS-CoV-2 test positive [Unknown]
  - Tinnitus [Not Recovered/Not Resolved]
  - Eyelid ptosis [Unknown]
  - Erythema of eyelid [Unknown]
  - Blepharitis [Unknown]
  - Procedural pain [Unknown]
  - Swelling of eyelid [Unknown]
  - Dry eye [Unknown]
  - Skin mass [Unknown]
  - Eyelid disorder [Unknown]
  - Chalazion [Unknown]
  - Diplopia [Recovered/Resolved]
  - Cough [Recovered/Resolved]
  - Dry eye [Unknown]
  - Hepatic cyst [Unknown]
  - Renal cyst [Unknown]
  - Mesenteric cyst [Unknown]
  - Gastrointestinal wall thickening [Unknown]
  - Intestinal dilatation [Unknown]
  - Biliary hamartoma [Unknown]
  - Weight decreased [Unknown]

NARRATIVE: CASE EVENT DATE: 20210101
